FAERS Safety Report 25125637 (Version 2)
Quarter: 2025Q1

REPORT INFORMATION
  Report Type: Spontaneous
  Country: CN (occurrence: CN)
  Receive Date: 20250326
  Receipt Date: 20250331
  Transmission Date: 20250408
  Serious: Yes (Other)
  Sender: MERCK SHARP & DOHME LLC
  Company Number: CN-009507513-2267366

PATIENT
  Age: 88 Year
  Sex: Male
  Weight: 65 kg

DRUGS (3)
  1. CILASTATIN SODIUM\IMIPENEM [Suspect]
     Active Substance: CILASTATIN SODIUM\IMIPENEM
     Indication: Chronic obstructive pulmonary disease
     Dosage: 0.5 G BID
     Route: 041
     Dates: start: 20250220, end: 20250225
  2. CILASTATIN SODIUM [Suspect]
     Active Substance: CILASTATIN SODIUM
     Indication: Chronic obstructive pulmonary disease
     Dosage: 0.5 G, BID
     Route: 041
     Dates: start: 20250225, end: 20250312
  3. SODIUM CHLORIDE [Concomitant]
     Active Substance: SODIUM CHLORIDE
     Indication: Medication dilution
     Dosage: 100 ML BID
     Route: 041
     Dates: start: 20250220, end: 20250312

REACTIONS (2)
  - Drug-induced liver injury [Recovering/Resolving]
  - Expired product administered [Unknown]

NARRATIVE: CASE EVENT DATE: 20250220
